FAERS Safety Report 18140367 (Version 1)
Quarter: 2020Q3

REPORT INFORMATION
  Report Type: Spontaneous
  Country: US (occurrence: US)
  Receive Date: 20200812
  Receipt Date: 20200812
  Transmission Date: 20201103
  Serious: No
  Sender: FDA-Public Use
  Company Number: US-ASTRAZENECA-2020SF00620

PATIENT
  Age: 59 Year
  Sex: Male
  Weight: 93 kg

DRUGS (1)
  1. BYDUREON BCISE [Suspect]
     Active Substance: EXENATIDE
     Indication: TYPE 2 DIABETES MELLITUS
     Dosage: 2MG/DL ONCE A WEEK
     Route: 058

REACTIONS (2)
  - Nodule [Not Recovered/Not Resolved]
  - Gastrointestinal infection [Not Recovered/Not Resolved]
